FAERS Safety Report 8356249-9 (Version None)
Quarter: 2012Q2

REPORT INFORMATION
  Report Type: 
  Country: None (occurrence: None)
  Receive Date: 20120514
  Receipt Date: 20120503
  Transmission Date: 20120825
  Serious: Yes (Other)
  Sender: FDA-Public Use
  Company Number: US-US-EMD SERONO, INC.-7130781

PATIENT
  Sex: Female

DRUGS (8)
  1. PERCOCET [Concomitant]
     Indication: HEADACHE
  2. EFFEXOR [Concomitant]
     Indication: DEPRESSION
  3. REBIF [Suspect]
     Indication: MULTIPLE SCLEROSIS
     Route: 058
     Dates: start: 20090422
  4. PROACTIV [Concomitant]
     Indication: ACNE
  5. IMITREX [Concomitant]
     Indication: HEADACHE
  6. CLONAZEPAM [Concomitant]
     Indication: ENERGY INCREASED
  7. SYNTHETIC MARIJUANA [Concomitant]
     Indication: ENERGY INCREASED
  8. SOLU-MEDROL [Concomitant]
     Indication: PROPHYLAXIS

REACTIONS (6)
  - GASTROENTERITIS VIRAL [None]
  - DIZZINESS [None]
  - INFLUENZA [None]
  - MULTIPLE SCLEROSIS RELAPSE [None]
  - VITAMIN D DEFICIENCY [None]
  - PNEUMONIA [None]
